FAERS Safety Report 23591645 (Version 2)
Quarter: 2024Q1

REPORT INFORMATION
  Report Type: Report from Study
  Country: US (occurrence: US)
  Receive Date: 20240304
  Receipt Date: 20240305
  Transmission Date: 20240410
  Serious: No
  Sender: FDA-Public Use
  Company Number: US-SANOFI-01963071

PATIENT
  Age: 50 Year
  Sex: Female

DRUGS (1)
  1. DUPILUMAB [Suspect]
     Active Substance: DUPILUMAB
     Indication: Eosinophilia
     Dosage: UNK

REACTIONS (2)
  - Visual impairment [Unknown]
  - Product use in unapproved indication [Unknown]
